FAERS Safety Report 21571791 (Version 1)
Quarter: 2022Q4

REPORT INFORMATION
  Report Type: Report from Study
  Country: IT (occurrence: IT)
  Receive Date: 20221109
  Receipt Date: 20221109
  Transmission Date: 20230112
  Serious: Yes (Other)
  Sender: FDA-Public Use
  Company Number: None

PATIENT
  Age: 84 Year
  Sex: Female

DRUGS (6)
  1. PANTOPRAZOLE [Interacting]
     Active Substance: PANTOPRAZOLE
     Indication: Gastrooesophageal reflux disease
     Dosage: UNIT DOSE: 1 DF, THERAPY END DATE: NASK
     Route: 065
     Dates: start: 20210101
  2. LASIX [Interacting]
     Active Substance: FUROSEMIDE
     Indication: Hypertension
     Dosage: UNIT DOSE: 50 MG
     Route: 065
  3. FEBUXOSTAT [Concomitant]
     Active Substance: FEBUXOSTAT
     Indication: Product used for unknown indication
     Dosage: FREQUENCY TIME : 1 DAY, UNIT DOSE: 1 DF
  4. EDOXABAN TOSYLATE [Concomitant]
     Active Substance: EDOXABAN TOSYLATE
     Indication: Product used for unknown indication
     Dosage: EDOXABAN: 1 DAY, UNIT DOSE: 30 MG
  5. ENTRESTO [Concomitant]
     Active Substance: SACUBITRIL\VALSARTAN
     Indication: Product used for unknown indication
     Dosage: FREQUENCY TIME: 1 DAY, UNIT DOSE: 2 DF
  6. BISOPROLOL [Concomitant]
     Active Substance: BISOPROLOL
     Indication: Product used for unknown indication
     Dosage: FREQUENCY TIME : 1 DAY, UNIT DOSE: 2.5 MG

REACTIONS (2)
  - Hypokalaemia [Recovering/Resolving]
  - Drug interaction [Recovering/Resolving]

NARRATIVE: CASE EVENT DATE: 20220417
